FAERS Safety Report 18791727 (Version 2)
Quarter: 2021Q2

REPORT INFORMATION
  Report Type: Spontaneous
  Country: US (occurrence: US)
  Receive Date: 20210127
  Receipt Date: 20210609
  Transmission Date: 20210717
  Serious: No
  Sender: FDA-Public Use
  Company Number: US-009507513-2101USA007407

PATIENT
  Age: 77 Year
  Sex: Female

DRUGS (7)
  1. BELSOMRA [Suspect]
     Active Substance: SUVOREXANT
     Indication: INSOMNIA
     Dosage: 5 MG, ONCE PER NIGHT, 30 MINUTES BEFORE BEDTIME
     Route: 048
     Dates: start: 20210112
  2. GEMFIBROZIL. [Concomitant]
     Active Substance: GEMFIBROZIL
     Indication: BLOOD CHOLESTEROL INCREASED
     Dosage: UNK
  3. BENADRYL P.D [Suspect]
     Active Substance: DIPHENHYDRAMINE HYDROCHLORIDE
     Dosage: TWO (UNSPECIFIED), DOSE UNKNOWN
  4. BELSOMRA [Suspect]
     Active Substance: SUVOREXANT
     Dosage: 10 MILLIGRAM, ONCE PER NIGHT, 30 MINUTES BEFORE BEDTIME
     Route: 048
     Dates: start: 2021
  5. MELATONIN [Suspect]
     Active Substance: MELATONIN
     Dosage: 20 MILLIGRAM
  6. GABAPENTIN. [Suspect]
     Active Substance: GABAPENTIN
     Dosage: ONE (UNSPECIFIED), DOSE UNKNOWN
  7. TYLENOL [Suspect]
     Active Substance: ACETAMINOPHEN
     Dosage: TWO (UNSPECIFIED), DOSE UNKNOWN

REACTIONS (3)
  - Nocturia [Not Recovered/Not Resolved]
  - Drug ineffective [Not Recovered/Not Resolved]
  - Product use issue [Unknown]

NARRATIVE: CASE EVENT DATE: 2021
